FAERS Safety Report 7353968-8 (Version None)
Quarter: 2011Q1

REPORT INFORMATION
  Report Type: 
  Country: None (occurrence: None)
  Receive Date: 20110315
  Receipt Date: 20110301
  Transmission Date: 20110831
  Serious: Yes (Hospitalization)
  Sender: FDA-Public Use
  Company Number: PHHY2011US17899

PATIENT
  Age: 32 Year
  Sex: Male
  Weight: 157 kg

DRUGS (12)
  1. PHENTERMINE [Suspect]
     Indication: DECREASED APPETITE
     Dosage: 37.5 MG, BID
     Route: 048
  2. ACETAMINOPHEN AND OXYCODONE HCL [Concomitant]
     Dosage: 2 DF, Q4H AS NEEDED
     Route: 048
  3. METOCLOPRAMIDE HCL [Concomitant]
     Dosage: 10 MG, Q8H AS NEEDED
     Route: 048
  4. DICYCLOMINE [Concomitant]
     Dosage: 10 MG, QID
     Route: 048
  5. LEVOTHYROXINE [Concomitant]
     Dosage: 112 UG, DAILY
     Route: 048
  6. TESTOSTERONE [Concomitant]
     Dosage: 5 MG, DAILY
     Route: 061
  7. ESOMEPRAZOLE [Concomitant]
     Dosage: 40 MG, DAILY
     Route: 048
  8. OXYCODONE [Concomitant]
     Dosage: 60 MG, BID EXTENDED RELEASE
     Route: 048
  9. TAMSULOSIN [Concomitant]
  10. METOPROLOL SUCCINATE [Concomitant]
     Dosage: 100 MG, BID
     Route: 048
  11. IRBESARTAN AND HYDROCHLOROTHIAZIDE [Concomitant]
     Dosage: 25,300 MG DAILY
     Route: 048
  12. PROCHLORPERAZINE [Concomitant]
     Dosage: 25 MG, Q12H AS NEEDED
     Route: 054

REACTIONS (18)
  - STAPHYLOCOCCAL INFECTION [None]
  - RHABDOMYOLYSIS [None]
  - NEPHROLITHIASIS [None]
  - KIDNEY INFECTION [None]
  - BLOOD URINE PRESENT [None]
  - BACK PAIN [None]
  - SWELLING [None]
  - PAROTITIS [None]
  - RENAL FAILURE ACUTE [None]
  - CALCULUS URINARY [None]
  - GROIN PAIN [None]
  - SINUS TACHYCARDIA [None]
  - MUSCULAR WEAKNESS [None]
  - ELECTROCARDIOGRAM T WAVE ABNORMAL [None]
  - LETHARGY [None]
  - HYPERURICAEMIA [None]
  - RASH [None]
  - MUSCULOSKELETAL PAIN [None]
